FAERS Safety Report 19382732 (Version 1)
Quarter: 2021Q2

REPORT INFORMATION
  Report Type: Report from Study
  Country: CA (occurrence: CA)
  Receive Date: 20210607
  Receipt Date: 20210607
  Transmission Date: 20210717
  Serious: Yes (Death)
  Sender: FDA-Public Use
  Company Number: CA-EXELIXIS-CABO-21041177

PATIENT
  Age: 71 Year
  Sex: Male

DRUGS (8)
  1. PRAVASTATIN. [Concomitant]
     Active Substance: PRAVASTATIN
  2. ADVIL [Concomitant]
     Active Substance: IBUPROFEN
  3. COENZYME Q10 [Concomitant]
     Active Substance: DIETARY SUPPLEMENT\UBIDECARENONE
  4. PANTOPRAZOLE [Concomitant]
     Active Substance: PANTOPRAZOLE
  5. VITAMIN C [Concomitant]
     Active Substance: ASCORBIC ACID
  6. TUMS [Concomitant]
     Active Substance: CALCIUM CARBONATE
  7. CODEINE [Concomitant]
     Active Substance: CODEINE
  8. CABOMETYX [Suspect]
     Active Substance: CABOZANTINIB S-MALATE
     Indication: RENAL CELL CARCINOMA
     Dosage: 40 MG, QD
     Route: 048
     Dates: start: 20200328

REACTIONS (1)
  - Death [Fatal]

NARRATIVE: CASE EVENT DATE: 20200710
